FAERS Safety Report 6268913-6 (Version None)
Quarter: 2009Q3

REPORT INFORMATION
  Report Type: 
  Country: None (occurrence: None)
  Receive Date: 20090715
  Receipt Date: 20090714
  Transmission Date: 20100115
  Serious: Yes (Life-Threatening)
  Sender: FDA-Public Use
  Company Number: DE-B.I. PHARMACEUTICALS,INC./RIDGEFIELD-2009-DE-04606DE

PATIENT
  Sex: Female

DRUGS (4)
  1. MICARDIS HCT [Suspect]
     Indication: HYPERTENSION
     Dosage: 1 ANZ
     Route: 048
     Dates: start: 20090523, end: 20090622
  2. ALLOPURINOL [Concomitant]
     Dosage: 0.5 ANZ
     Route: 048
  3. ASPIRIN [Concomitant]
     Dosage: 1 ANZ
     Route: 048
  4. TORSEMIDE [Concomitant]
     Dosage: 0.5 ANZ
     Route: 048

REACTIONS (2)
  - HYPONATRAEMIA [None]
  - OSMOTIC DEMYELINATION SYNDROME [None]
